FAERS Safety Report 14018165 (Version 1)
Quarter: 2017Q3

REPORT INFORMATION
  Report Type: Spontaneous
  Country: US (occurrence: US)
  Receive Date: 20170928
  Receipt Date: 20170928
  Transmission Date: 20171128
  Serious: No
  Sender: FDA-Public Use
  Company Number: US-BIOGEN-2017BI00463347

PATIENT
  Sex: Female

DRUGS (1)
  1. TECFIDERA [Suspect]
     Active Substance: DIMETHYL FUMARATE
     Indication: MULTIPLE SCLEROSIS
     Route: 065
     Dates: start: 20160428, end: 20170717

REACTIONS (3)
  - Speech disorder [Not Recovered/Not Resolved]
  - Wound [Not Recovered/Not Resolved]
  - Dysphagia [Not Recovered/Not Resolved]
